FAERS Safety Report 9379533 (Version 1)
Quarter: 2013Q3

REPORT INFORMATION
  Report Type: Spontaneous
  Country: FR (occurrence: FR)
  Receive Date: 20130702
  Receipt Date: 20130702
  Transmission Date: 20140515
  Serious: Yes (Death, Hospitalization)
  Sender: FDA-Public Use
  Company Number: FR-SANOFI-AVENTIS-2013SA065153

PATIENT
  Age: 85 Year
  Sex: Male

DRUGS (7)
  1. RIFADINE [Suspect]
     Indication: PRODUCT USED FOR UNKNOWN INDICATION
     Dosage: STRENGTH: 300 MG
     Route: 048
     Dates: start: 20130528, end: 20130604
  2. BACTRIM FORTE [Suspect]
     Indication: PRODUCT USED FOR UNKNOWN INDICATION
     Route: 048
     Dates: start: 20130528, end: 20130604
  3. VANCOMYCINE [Concomitant]
     Route: 042
     Dates: start: 20130519, end: 20130528
  4. TAZOBACTAM [Concomitant]
     Dates: start: 20130521, end: 20130528
  5. PIPERACILLIN [Concomitant]
     Dates: start: 20130528, end: 20130531
  6. ROCEPHINE [Concomitant]
     Dates: start: 20130519, end: 20130521
  7. PIPERACILLIN/TAZOBACTAM [Concomitant]
     Dates: start: 20130531, end: 20130611

REACTIONS (5)
  - Renal failure acute [Fatal]
  - Blood creatinine increased [Fatal]
  - Hyperthermia [Fatal]
  - Chills [Fatal]
  - Diarrhoea [Fatal]
